FAERS Safety Report 17996120 (Version 1)
Quarter: 2020Q3

REPORT INFORMATION
  Report Type: Report from Study
  Country: US (occurrence: US)
  Receive Date: 20200708
  Receipt Date: 20200708
  Transmission Date: 20201103
  Serious: Yes (Hospitalization)
  Sender: FDA-Public Use
  Company Number: US-EXELIXIS-CABO-20030952

PATIENT
  Age: 56 Year
  Sex: Female

DRUGS (12)
  1. KLOR?CON [Concomitant]
     Active Substance: POTASSIUM CHLORIDE
  2. CELEXA [Concomitant]
     Active Substance: CITALOPRAM HYDROBROMIDE
  3. WELLBUTRIN [Concomitant]
     Active Substance: BUPROPION HYDROCHLORIDE
  4. FLONASE [Concomitant]
     Active Substance: FLUTICASONE PROPIONATE
  5. DEXAMETHASONE. [Concomitant]
     Active Substance: DEXAMETHASONE
  6. CABOMETYX [Suspect]
     Active Substance: CABOZANTINIB S-MALATE
     Indication: METASTASES TO LUNG
     Dosage: 20 MG, QOD, ALTERNATING WITH 40 MG, QOD
     Route: 048
  7. SYNTHROID [Concomitant]
     Active Substance: LEVOTHYROXINE SODIUM
  8. FLUDROCORTISONE [Concomitant]
     Active Substance: FLUDROCORTISONE
  9. PREDNISONE. [Concomitant]
     Active Substance: PREDNISONE
  10. XARELTO [Concomitant]
     Active Substance: RIVAROXABAN
  11. CORTEF [Concomitant]
     Active Substance: HYDROCORTISONE
  12. PEPCID [Concomitant]
     Active Substance: FAMOTIDINE

REACTIONS (3)
  - Fall [Unknown]
  - Off label use [Unknown]
  - Wrist fracture [Unknown]

NARRATIVE: CASE EVENT DATE: 20200521
